FAERS Safety Report 4610207-6 (Version None)
Quarter: 2005Q1

REPORT INFORMATION
  Report Type: 
  Country: None (occurrence: None)
  Receive Date: 20050301
  Receipt Date: 20041115
  Transmission Date: 20050727
  Serious: No
  Sender: FDA-Public Use
  Company Number: WAES 0411USA02595

PATIENT
  Age: 51 Year
  Sex: Male

DRUGS (2)
  1. ZETIA [Suspect]
     Dosage: PO
     Route: 048
  2. LIPITOR [Concomitant]

REACTIONS (3)
  - HEPATIC STEATOSIS [None]
  - SERUM FERRITIN INCREASED [None]
  - TRANSAMINASES INCREASED [None]
